FAERS Safety Report 18552843 (Version 3)
Quarter: 2025Q2

REPORT INFORMATION
  Report Type: Report from Study
  Country: US (occurrence: US)
  Receive Date: 20201127
  Receipt Date: 20250619
  Transmission Date: 20250716
  Serious: Yes (Hospitalization, Other)
  Sender: AUROBINDO
  Company Number: US-AUROBINDO-AUR-APL-2020-058436

PATIENT
  Age: 8 Month
  Sex: Male
  Weight: 8.1 kg

DRUGS (7)
  1. BUPIVACAINE HYDROCHLORIDE [Suspect]
     Active Substance: BUPIVACAINE HYDROCHLORIDE
     Indication: Spinal anaesthesia
     Route: 008
  2. CLONIDINE [Suspect]
     Active Substance: CLONIDINE
     Indication: Product used for unknown indication
     Route: 065
  3. CLONIDINE [Suspect]
     Active Substance: CLONIDINE
     Indication: Spinal anaesthesia
     Route: 008
  4. EPINEPHRINE [Suspect]
     Active Substance: EPINEPHRINE
     Indication: Spinal anaesthesia
     Route: 065
  5. EPINEPHRINE [Suspect]
     Active Substance: EPINEPHRINE
     Route: 008
  6. MIDAZOLAM [Suspect]
     Active Substance: MIDAZOLAM
     Indication: Spinal anaesthesia
     Route: 048
  7. MIDAZOLAM [Suspect]
     Active Substance: MIDAZOLAM
     Indication: Premedication

REACTIONS (4)
  - Loss of consciousness [Recovered/Resolved]
  - Areflexia [Recovered/Resolved]
  - Delayed recovery from anaesthesia [Recovered/Resolved]
  - Corneal reflex decreased [Recovered/Resolved]
